FAERS Safety Report 10786446 (Version 2)
Quarter: 2015Q1

REPORT INFORMATION
  Report Type: Report from Study
  Country: DE (occurrence: DE)
  Receive Date: 20150211
  Receipt Date: 20150216
  Transmission Date: 20150721
  Serious: Yes (Other)
  Sender: FDA-Public Use
  Company Number: DE-ABBVIE-15P-062-1345527-00

PATIENT
  Age: 83 Year
  Sex: Male

DRUGS (2)
  1. ENANTONE LP [Suspect]
     Active Substance: LEUPROLIDE ACETATE
     Indication: PROSTATE CANCER
     Route: 065
     Dates: start: 20120731
  2. LEUPRORELIN (LEUPRORELIN ACETATE) (TRENANTONE) [Suspect]
     Active Substance: LEUPROLIDE ACETATE
     Indication: PROSTATE CANCER
     Route: 058
     Dates: start: 20120904, end: 20121210

REACTIONS (3)
  - Foot fracture [Unknown]
  - Ileus [Unknown]
  - Osteolysis [Unknown]

NARRATIVE: CASE EVENT DATE: 201209
